FAERS Safety Report 18053145 (Version 1)
Quarter: 2020Q3

REPORT INFORMATION
  Report Type: Spontaneous
  Country: US (occurrence: US)
  Receive Date: 20200721
  Receipt Date: 20200721
  Transmission Date: 20201103
  Serious: Yes (Hospitalization)
  Sender: FDA-Public Use
  Company Number: None

PATIENT
  Age: 57 Year
  Sex: Female
  Weight: 75.3 kg

DRUGS (1)
  1. METHYLPREDNISOLONE 1000MG FRESENIUS [Suspect]
     Active Substance: METHYLPREDNISOLONE
     Indication: MULTIPLE SCLEROSIS
     Dosage: ?          OTHER ROUTE:PIV?
     Route: 042
     Dates: start: 20200708, end: 20200708

REACTIONS (4)
  - Pruritus [None]
  - Dizziness [None]
  - Lethargy [None]
  - Dyspnoea [None]

NARRATIVE: CASE EVENT DATE: 20200708
